FAERS Safety Report 13269439 (Version 1)
Quarter: 2017Q1

REPORT INFORMATION
  Report Type: Spontaneous
  Country: KR (occurrence: KR)
  Receive Date: 20170224
  Receipt Date: 20170224
  Transmission Date: 20170428
  Serious: Yes (Death)
  Sender: FDA-Public Use
  Company Number: KR-BAYER-2017-031466

PATIENT
  Age: 69 Year
  Sex: Female
  Weight: 45 kg

DRUGS (3)
  1. NEXAVAR [Suspect]
     Active Substance: SORAFENIB
     Indication: THYROID CANCER
     Dosage: DAILY DOSE 800 MG
     Route: 048
  2. NEXAVAR [Suspect]
     Active Substance: SORAFENIB
     Indication: THYROID CANCER
     Dosage: DAILY DOSE 400 MG
     Route: 048
  3. DOVITINIB [Concomitant]
     Active Substance: DOVITINIB LACTATE

REACTIONS (7)
  - Fatigue [None]
  - Rash [None]
  - Asthenia [None]
  - Dizziness [None]
  - Death [Fatal]
  - Palmar-plantar erythrodysaesthesia syndrome [None]
  - Alopecia [None]

NARRATIVE: CASE EVENT DATE: 20140522
